FAERS Safety Report 25288319 (Version 5)
Quarter: 2025Q2

REPORT INFORMATION
  Report Type: Spontaneous
  Country: NZ (occurrence: NZ)
  Receive Date: 20250509
  Receipt Date: 20250611
  Transmission Date: 20250716
  Serious: Yes (Other)
  Sender: MYLAN
  Company Number: NZ-MYLANLABS-2025M1025462

PATIENT
  Age: 72 Year
  Sex: Male

DRUGS (4)
  1. CLOZARIL [Suspect]
     Active Substance: CLOZAPINE
     Indication: Schizophrenia
     Dates: start: 20250307, end: 20250505
  2. CLOZARIL [Suspect]
     Active Substance: CLOZAPINE
     Route: 048
     Dates: start: 20250307, end: 20250505
  3. CLOZARIL [Suspect]
     Active Substance: CLOZAPINE
     Route: 048
     Dates: start: 20250307, end: 20250505
  4. CLOZARIL [Suspect]
     Active Substance: CLOZAPINE
     Dates: start: 20250307, end: 20250505

REACTIONS (6)
  - Neutropenia [Recovered/Resolved]
  - Mean platelet volume decreased [Unknown]
  - Eosinophil count increased [Unknown]
  - White blood cell count decreased [Recovered/Resolved]
  - Neutrophil count increased [Unknown]
  - Leukocytosis [Unknown]

NARRATIVE: CASE EVENT DATE: 20250318
